FAERS Safety Report 14684490 (Version 1)
Quarter: 2018Q1

REPORT INFORMATION
  Report Type: Spontaneous
  Country: US (occurrence: US)
  Receive Date: 20180327
  Receipt Date: 20180327
  Transmission Date: 20180509
  Serious: Yes (Other)
  Sender: FDA-Public Use
  Company Number: None

PATIENT
  Age: 10 Year
  Sex: Male
  Weight: 44 kg

DRUGS (9)
  1. MORPHINE SULFATE. [Suspect]
     Active Substance: MORPHINE SULFATE
     Indication: PERIOPERATIVE ANALGESIA
  2. OLANZAPINE. [Suspect]
     Active Substance: OLANZAPINE
  3. DIVALPROEX [Concomitant]
     Active Substance: DIVALPROEX SODIUM
  4. FLUVOXAMINE [Concomitant]
     Active Substance: FLUVOXAMINE
  5. METHYLPHENIDATE HYDROCHLORIDE. [Suspect]
     Active Substance: METHYLPHENIDATE HYDROCHLORIDE
  6. PROPOFOL. [Concomitant]
     Active Substance: PROPOFOL
  7. FENTANYL. [Suspect]
     Active Substance: FENTANYL
     Indication: POSTOPERATIVE ANALGESIA
  8. ZIPRASIDONE HYDROCHLORIDE. [Suspect]
     Active Substance: ZIPRASIDONE HYDROCHLORIDE
  9. CODEINE [Suspect]
     Active Substance: CODEINE
     Indication: POSTOPERATIVE ANALGESIA

REACTIONS (8)
  - Agitation [None]
  - Flushing [None]
  - Blepharospasm [None]
  - Amnesia [None]
  - Confusional state [None]
  - Serotonin syndrome [None]
  - Tremor [None]
  - Hyperhidrosis [None]
